FAERS Safety Report 4407080-8 (Version None)
Quarter: 2004Q3

REPORT INFORMATION
  Report Type: 
  Country: None (occurrence: None)
  Receive Date: 20040723
  Receipt Date: 20040723
  Transmission Date: 20050211
  Serious: Yes (Life-Threatening, Hospitalization)
  Sender: FDA-Public Use
  Company Number: None

PATIENT
  Age: 56 Year
  Sex: Male
  Weight: 74.8435 kg

DRUGS (1)
  1. TAXOL [Suspect]

REACTIONS (5)
  - CORONARY ARTERY ANEURYSM [None]
  - MEDICAL DEVICE COMPLICATION [None]
  - POST PROCEDURAL COMPLICATION [None]
  - POSTOPERATIVE INFECTION [None]
  - STAPHYLOCOCCAL BACTERAEMIA [None]
